FAERS Safety Report 18332902 (Version 4)
Quarter: 2021Q1

REPORT INFORMATION
  Report Type: Report from Study
  Country: None (occurrence: US)
  Receive Date: 20200930
  Receipt Date: 20210111
  Transmission Date: 20210419
  Serious: Yes (Hospitalization)
  Sender: FDA-Public Use
  Company Number: US-ABBVIE-20K-163-3588018-00

PATIENT
  Age: 68 Year
  Sex: Female

DRUGS (2)
  1. VENCLEXTA [Suspect]
     Active Substance: VENETOCLAX
     Route: 048
  2. VENCLEXTA [Suspect]
     Active Substance: VENETOCLAX
     Indication: ACUTE MYELOID LEUKAEMIA
     Route: 048
     Dates: start: 20200914

REACTIONS (6)
  - Blood count abnormal [Unknown]
  - Anaemia [Unknown]
  - Dysstasia [Recovering/Resolving]
  - Platelet count decreased [Unknown]
  - Splenic lesion [Unknown]
  - Asthenia [Unknown]

NARRATIVE: CASE EVENT DATE: 202009
